FAERS Safety Report 9905335 (Version 1)
Quarter: 2013Q2

REPORT INFORMATION
  Report Type: Spontaneous
  Country: US (occurrence: None)
  Receive Date: 20130305
  Receipt Date: 20130305
  Transmission Date: 20140414
  Serious: Yes (Other)
  Sender: FDA-Public Use
  Company Number: 163-21880-12041555

PATIENT
  Age: 76 Year
  Sex: Female

DRUGS (6)
  1. REVLIMID [Suspect]
     Indication: PLASMA CELL MYELOMA
     Route: 048
     Dates: start: 201003, end: 2010
  2. ASA (ACETYLSALICYLIC ACID) (UNKNOWN) [Concomitant]
  3. BENTYL (DICYCLOVERINE HYDROCHLORIDE) (UNKNOWN) [Concomitant]
  4. LEVAQUIN (LEVOFLOXACIN) (UNKNOWN) [Concomitant]
  5. NORVASC (AMLODIPINE BESILATE) (UNKNOWN) [Concomitant]
  6. VELCADE (BORTEZOMIB) (UNKNOWN) [Concomitant]

REACTIONS (1)
  - Neutropenia [None]
